FAERS Safety Report 13436247 (Version 10)
Quarter: 2017Q4

REPORT INFORMATION
  Report Type: Report from Study
  Country: US (occurrence: US)
  Receive Date: 20170413
  Receipt Date: 20171107
  Transmission Date: 20180320
  Serious: Yes (Other)
  Sender: FDA-Public Use
  Company Number: US-JNJFOC-20170203777

PATIENT
  Age: 69 Year
  Sex: Male

DRUGS (9)
  1. HUMALOG [Concomitant]
     Active Substance: INSULIN LISPRO
  2. COENZYME Q10 [Concomitant]
     Active Substance: UBIDECARENONE
  3. LEVEMIR [Concomitant]
     Active Substance: INSULIN DETEMIR
  4. IODINE. [Concomitant]
     Active Substance: IODINE
  5. IMBRUVICA [Suspect]
     Active Substance: IBRUTINIB
     Indication: CHRONIC LYMPHOCYTIC LEUKAEMIA
     Route: 048
     Dates: start: 20170127
  6. LASIX [Suspect]
     Active Substance: FUROSEMIDE
     Indication: PRODUCT USED FOR UNKNOWN INDICATION
     Route: 065
  7. IMBRUVICA [Suspect]
     Active Substance: IBRUTINIB
     Indication: CHRONIC LYMPHOCYTIC LEUKAEMIA
     Route: 048
     Dates: start: 201702
  8. TYLENOL WITH CODEINE [Concomitant]
     Active Substance: ACETAMINOPHEN\CODEINE PHOSPHATE
  9. NIACIN. [Concomitant]
     Active Substance: NIACIN

REACTIONS (26)
  - Haematochezia [Unknown]
  - Skin haemorrhage [Not Recovered/Not Resolved]
  - Rash macular [Not Recovered/Not Resolved]
  - Pruritus generalised [Unknown]
  - Nausea [Not Recovered/Not Resolved]
  - Arthritis salmonella [Unknown]
  - Contusion [Not Recovered/Not Resolved]
  - Balance disorder [Unknown]
  - Blood pressure abnormal [Unknown]
  - Abdominal pain upper [Unknown]
  - Platelet count abnormal [Not Recovered/Not Resolved]
  - Body temperature decreased [Not Recovered/Not Resolved]
  - Ulcer [Unknown]
  - Seasonal allergy [Unknown]
  - Fatigue [Unknown]
  - Diarrhoea [Unknown]
  - Dry skin [Unknown]
  - Blood pressure increased [Not Recovered/Not Resolved]
  - Application site rash [Not Recovered/Not Resolved]
  - Anaemia [Unknown]
  - Sneezing [Unknown]
  - Decreased appetite [Unknown]
  - Dyspepsia [Not Recovered/Not Resolved]
  - Skin exfoliation [Not Recovered/Not Resolved]
  - Feeling cold [Unknown]
  - Asthenia [Not Recovered/Not Resolved]

NARRATIVE: CASE EVENT DATE: 2017
